FAERS Safety Report 10342047 (Version 37)
Quarter: 2025Q3

REPORT INFORMATION
  Report Type: Report from Study
  Country: CA (occurrence: CA)
  Receive Date: 20140725
  Receipt Date: 20250731
  Transmission Date: 20251020
  Serious: Yes (Hospitalization, Other)
  Sender: ROCHE
  Company Number: CA-ROCHE-1425950

PATIENT
  Age: 61 Year
  Sex: Female

DRUGS (69)
  1. XOLAIR [Suspect]
     Active Substance: OMALIZUMAB
     Indication: Asthma
     Route: 058
     Dates: start: 20080808
  2. XOLAIR [Suspect]
     Active Substance: OMALIZUMAB
     Route: 058
     Dates: start: 20170111
  3. XOLAIR [Suspect]
     Active Substance: OMALIZUMAB
     Route: 058
     Dates: start: 20170124
  4. XOLAIR [Suspect]
     Active Substance: OMALIZUMAB
     Route: 058
     Dates: start: 20170221
  5. XOLAIR [Suspect]
     Active Substance: OMALIZUMAB
     Route: 058
     Dates: start: 20170306
  6. XOLAIR [Suspect]
     Active Substance: OMALIZUMAB
     Route: 058
     Dates: start: 20170320
  7. XOLAIR [Suspect]
     Active Substance: OMALIZUMAB
     Route: 058
     Dates: start: 20170403
  8. XOLAIR [Suspect]
     Active Substance: OMALIZUMAB
     Route: 058
     Dates: start: 20170417
  9. XOLAIR [Suspect]
     Active Substance: OMALIZUMAB
     Route: 058
     Dates: start: 20170501
  10. XOLAIR [Suspect]
     Active Substance: OMALIZUMAB
     Route: 058
     Dates: start: 20170515
  11. XOLAIR [Suspect]
     Active Substance: OMALIZUMAB
     Route: 058
     Dates: start: 20170529
  12. XOLAIR [Suspect]
     Active Substance: OMALIZUMAB
     Route: 058
     Dates: start: 20170612
  13. XOLAIR [Suspect]
     Active Substance: OMALIZUMAB
     Route: 058
     Dates: start: 20170626
  14. XOLAIR [Suspect]
     Active Substance: OMALIZUMAB
     Route: 058
     Dates: start: 20170710
  15. XOLAIR [Suspect]
     Active Substance: OMALIZUMAB
     Route: 058
     Dates: start: 20170724
  16. XOLAIR [Suspect]
     Active Substance: OMALIZUMAB
     Route: 058
     Dates: start: 20170809
  17. XOLAIR [Suspect]
     Active Substance: OMALIZUMAB
     Route: 058
     Dates: start: 20170821
  18. XOLAIR [Suspect]
     Active Substance: OMALIZUMAB
     Route: 058
     Dates: start: 20170918
  19. XOLAIR [Suspect]
     Active Substance: OMALIZUMAB
     Route: 058
     Dates: start: 20171002
  20. XOLAIR [Suspect]
     Active Substance: OMALIZUMAB
     Route: 058
     Dates: start: 20171017
  21. XOLAIR [Suspect]
     Active Substance: OMALIZUMAB
     Route: 058
     Dates: start: 20171030
  22. XOLAIR [Suspect]
     Active Substance: OMALIZUMAB
     Route: 058
     Dates: start: 20171113
  23. XOLAIR [Suspect]
     Active Substance: OMALIZUMAB
     Route: 058
     Dates: start: 20171127
  24. XOLAIR [Suspect]
     Active Substance: OMALIZUMAB
     Route: 058
     Dates: start: 20171211
  25. XOLAIR [Suspect]
     Active Substance: OMALIZUMAB
     Route: 058
     Dates: start: 20180108
  26. XOLAIR [Suspect]
     Active Substance: OMALIZUMAB
     Route: 058
     Dates: start: 20180122
  27. XOLAIR [Suspect]
     Active Substance: OMALIZUMAB
     Route: 058
     Dates: start: 20180402
  28. XOLAIR [Suspect]
     Active Substance: OMALIZUMAB
     Route: 058
     Dates: start: 20180416
  29. XOLAIR [Suspect]
     Active Substance: OMALIZUMAB
     Route: 058
     Dates: start: 20180430
  30. XOLAIR [Suspect]
     Active Substance: OMALIZUMAB
     Route: 058
     Dates: start: 20180514
  31. XOLAIR [Suspect]
     Active Substance: OMALIZUMAB
     Route: 058
     Dates: start: 20180528
  32. XOLAIR [Suspect]
     Active Substance: OMALIZUMAB
     Route: 058
     Dates: start: 20180723
  33. XOLAIR [Suspect]
     Active Substance: OMALIZUMAB
     Route: 058
     Dates: start: 20080808
  34. XOLAIR [Suspect]
     Active Substance: OMALIZUMAB
     Route: 058
     Dates: start: 20190121
  35. XOLAIR [Suspect]
     Active Substance: OMALIZUMAB
     Route: 058
     Dates: start: 20180528
  36. XOLAIR [Suspect]
     Active Substance: OMALIZUMAB
     Route: 058
     Dates: start: 20180723
  37. XOLAIR [Suspect]
     Active Substance: OMALIZUMAB
     Route: 058
     Dates: start: 20180723
  38. XOLAIR [Suspect]
     Active Substance: OMALIZUMAB
     Route: 058
     Dates: start: 20180807
  39. XOLAIR [Suspect]
     Active Substance: OMALIZUMAB
     Route: 058
     Dates: start: 20190121
  40. XOLAIR [Suspect]
     Active Substance: OMALIZUMAB
     Route: 058
     Dates: start: 20190121
  41. XOLAIR [Suspect]
     Active Substance: OMALIZUMAB
     Route: 058
     Dates: start: 20190611
  42. XOLAIR [Suspect]
     Active Substance: OMALIZUMAB
     Route: 058
     Dates: start: 20190722
  43. XOLAIR [Suspect]
     Active Substance: OMALIZUMAB
     Route: 058
     Dates: start: 2019
  44. XOLAIR [Suspect]
     Active Substance: OMALIZUMAB
     Route: 058
     Dates: start: 20200121
  45. XOLAIR [Suspect]
     Active Substance: OMALIZUMAB
     Route: 058
     Dates: start: 20200814
  46. XOLAIR [Suspect]
     Active Substance: OMALIZUMAB
     Route: 058
     Dates: start: 20200831
  47. XOLAIR [Suspect]
     Active Substance: OMALIZUMAB
     Route: 058
  48. XOLAIR [Suspect]
     Active Substance: OMALIZUMAB
     Route: 058
  49. XOLAIR [Suspect]
     Active Substance: OMALIZUMAB
     Route: 058
  50. XOLAIR [Suspect]
     Active Substance: OMALIZUMAB
     Route: 058
  51. XOLAIR [Suspect]
     Active Substance: OMALIZUMAB
     Route: 058
  52. XOLAIR [Suspect]
     Active Substance: OMALIZUMAB
     Route: 058
  53. XOLAIR [Suspect]
     Active Substance: OMALIZUMAB
     Route: 058
  54. XOLAIR [Suspect]
     Active Substance: OMALIZUMAB
     Route: 058
  55. XOLAIR [Suspect]
     Active Substance: OMALIZUMAB
     Route: 058
  56. XOLAIR [Suspect]
     Active Substance: OMALIZUMAB
     Route: 058
  57. XOLAIR [Suspect]
     Active Substance: OMALIZUMAB
     Route: 058
  58. XOLAIR [Suspect]
     Active Substance: OMALIZUMAB
     Route: 058
  59. XOLAIR [Suspect]
     Active Substance: OMALIZUMAB
     Route: 058
  60. XOLAIR [Suspect]
     Active Substance: OMALIZUMAB
     Route: 058
  61. XOLAIR [Suspect]
     Active Substance: OMALIZUMAB
     Route: 058
  62. XOLAIR [Suspect]
     Active Substance: OMALIZUMAB
     Route: 058
  63. XOLAIR [Suspect]
     Active Substance: OMALIZUMAB
     Route: 058
  64. XOLAIR [Suspect]
     Active Substance: OMALIZUMAB
     Route: 058
  65. XOLAIR [Suspect]
     Active Substance: OMALIZUMAB
     Route: 058
  66. XOLAIR [Suspect]
     Active Substance: OMALIZUMAB
     Route: 058
  67. XOLAIR [Suspect]
     Active Substance: OMALIZUMAB
     Route: 058
  68. XOLAIR [Suspect]
     Active Substance: OMALIZUMAB
     Route: 058
  69. XOLAIR [Suspect]
     Active Substance: OMALIZUMAB
     Route: 058

REACTIONS (12)
  - Mental disorder [Recovering/Resolving]
  - Pneumonia [Unknown]
  - Skin infection [Unknown]
  - Haematological infection [Unknown]
  - Localised infection [Unknown]
  - Hypoglycaemia [Recovering/Resolving]
  - Intentional self-injury [Not Recovered/Not Resolved]
  - Blood pressure systolic increased [Not Recovered/Not Resolved]
  - Blood pressure diastolic decreased [Not Recovered/Not Resolved]
  - Weight decreased [Recovering/Resolving]
  - Inappropriate schedule of product administration [Unknown]
  - Wrong technique in product usage process [Unknown]

NARRATIVE: CASE EVENT DATE: 20120101
